FAERS Safety Report 19078932 (Version 10)
Quarter: 2022Q2

REPORT INFORMATION
  Report Type: Report from Study
  Country: US (occurrence: US)
  Receive Date: 20210331
  Receipt Date: 20220428
  Transmission Date: 20220721
  Serious: Yes (Other)
  Sender: FDA-Public Use
  Company Number: US-NOVARTISPH-NVSC2021US068845

PATIENT
  Age: 74 Year
  Sex: Female
  Weight: 44.91 kg

DRUGS (3)
  1. ENTRESTO [Suspect]
     Active Substance: SACUBITRIL\VALSARTAN
     Indication: Cardiac failure
     Dosage: 1 DF, BID ((24/26 MG)
     Route: 048
     Dates: start: 20210313
  2. FUROSEMIDE [Suspect]
     Active Substance: FUROSEMIDE
     Indication: Cardiac failure
     Dosage: 1 DF, QOD
     Route: 048
     Dates: start: 2020
  3. FUROSEMIDE [Suspect]
     Active Substance: FUROSEMIDE
     Dosage: 1 DF (ONE TAB EVERY MONDAY, WEDNESDAY AND FRIDAY)
     Route: 048
     Dates: start: 202103

REACTIONS (34)
  - Cardiac flutter [Unknown]
  - Amnesia [Unknown]
  - Memory impairment [Unknown]
  - Weight fluctuation [Unknown]
  - Dry mouth [Unknown]
  - Pain in extremity [Unknown]
  - Erythema [Unknown]
  - Limb discomfort [Recovered/Resolved]
  - Throat irritation [Unknown]
  - Rhinorrhoea [Unknown]
  - Weight increased [Recovering/Resolving]
  - Neck pain [Unknown]
  - Wound [Recovered/Resolved]
  - Head injury [Recovered/Resolved]
  - Abdominal pain upper [Recovered/Resolved]
  - Skin discolouration [Recovered/Resolved]
  - Flatulence [Recovered/Resolved]
  - Stress [Not Recovered/Not Resolved]
  - Anxiety [Unknown]
  - Abdominal pain upper [Recovered/Resolved]
  - Blood pressure systolic increased [Unknown]
  - Proctalgia [Unknown]
  - Abdominal pain upper [Recovered/Resolved]
  - Movement disorder [Unknown]
  - Musculoskeletal stiffness [Unknown]
  - Eye contusion [Recovered/Resolved]
  - Fall [Recovered/Resolved]
  - Fall [Recovered/Resolved]
  - Nausea [Recovered/Resolved]
  - Fatigue [Recovered/Resolved]
  - Pruritus [Unknown]
  - Hypotension [Unknown]
  - Dizziness [Unknown]
  - Diarrhoea [Recovered/Resolved]

NARRATIVE: CASE EVENT DATE: 20200401
